FAERS Safety Report 7198944-3 (Version None)
Quarter: 2010Q4

REPORT INFORMATION
  Report Type: 
  Country: None (occurrence: None)
  Receive Date: 20101227
  Receipt Date: 20101222
  Transmission Date: 20110411
  Serious: Yes (Hospitalization)
  Sender: FDA-Public Use
  Company Number: US-ELI_LILLY_AND_COMPANY-US201009007877

PATIENT
  Sex: Male
  Weight: 80.6 kg

DRUGS (22)
  1. PEMETREXED [Suspect]
     Indication: NON-SMALL CELL LUNG CANCER
     Dosage: 500 MG/M2, UNKNOWN
     Route: 065
     Dates: start: 20100827
  2. TARCEVA [Suspect]
     Indication: NON-SMALL CELL LUNG CANCER
     Dosage: 150 MG, UNKNOWN
     Route: 065
     Dates: start: 20100827, end: 20100923
  3. TERAZOSIN HCL [Concomitant]
     Dosage: UNK, UNKNOWN
     Route: 065
  4. LOVASTATIN [Concomitant]
     Dosage: UNK, UNKNOWN
     Route: 065
  5. ATENOLOL [Concomitant]
     Dosage: UNK, UNKNOWN
     Route: 065
  6. M.V.I. [Concomitant]
     Dosage: UNK, UNKNOWN
     Route: 065
  7. ASPIRIN [Concomitant]
     Dosage: UNK, UNKNOWN
     Route: 065
  8. GABAPENTIN [Concomitant]
     Dosage: UNK, UNKNOWN
     Route: 065
  9. CITALOPRAM [Concomitant]
     Dosage: UNK, UNKNOWN
     Route: 065
  10. K-DUR [Concomitant]
     Dosage: UNK, UNKNOWN
     Route: 065
  11. ONDANSETRON [Concomitant]
     Dosage: UNK, UNKNOWN
     Route: 065
  12. PROCHLORPERAZINE [Concomitant]
     Dosage: UNK, UNKNOWN
     Route: 065
  13. DEXAMETHASONE [Concomitant]
     Dosage: UNK, UNKNOWN
     Route: 065
  14. OXYCONTIN [Concomitant]
     Dosage: UNK, UNKNOWN
     Route: 065
  15. OXYCODONE [Concomitant]
     Dosage: UNK, UNKNOWN
     Route: 065
  16. IMODIUM [Concomitant]
     Dosage: UNK, UNKNOWN
     Route: 065
  17. LOMOTIL [Concomitant]
     Dosage: UNK, UNKNOWN
     Route: 065
  18. MIRALAX [Concomitant]
     Dosage: UNK, UNKNOWN
     Route: 065
  19. DOXICYCLINE /00055701/ [Concomitant]
     Dosage: UNK, UNKNOWN
     Route: 065
  20. CYCLOBENZAPRINE [Concomitant]
     Dosage: UNK, UNKNOWN
     Route: 065
  21. LACTAID [Concomitant]
     Dosage: UNK, UNKNOWN
     Route: 065
  22. TYLENOL PM [Concomitant]
     Dosage: UNK, UNKNOWN
     Route: 065

REACTIONS (6)
  - DYSPNOEA [None]
  - FEBRILE NEUTROPENIA [None]
  - HYPOXIA [None]
  - NEUTROPHIL COUNT DECREASED [None]
  - PLATELET COUNT DECREASED [None]
  - WHITE BLOOD CELL COUNT DECREASED [None]
